FAERS Safety Report 7388379-2 (Version None)
Quarter: 2011Q2

REPORT INFORMATION
  Report Type: 
  Country: None (occurrence: None)
  Receive Date: 20110401
  Receipt Date: 20110322
  Transmission Date: 20111010
  Serious: Yes (Hospitalization, Other)
  Sender: FDA-Public Use
  Company Number: PHHY2011VE24592

PATIENT
  Sex: Female

DRUGS (2)
  1. GLEEVEC [Suspect]
     Indication: CHRONIC MYELOID LEUKAEMIA
     Dosage: 300 MG, QD
     Route: 048
     Dates: start: 20100501, end: 20110315
  2. GLEEVEC [Suspect]
     Dosage: 300 MG, QD
     Route: 048
     Dates: start: 20110322

REACTIONS (5)
  - CHRONIC MYELOID LEUKAEMIA [None]
  - WHITE BLOOD CELL COUNT ABNORMAL [None]
  - VOMITING [None]
  - DIARRHOEA [None]
  - RENAL DISORDER [None]
